FAERS Safety Report 21993012 (Version 1)
Quarter: 2023Q1

REPORT INFORMATION
  Report Type: Spontaneous
  Country: None (occurrence: PT)
  Receive Date: 20230215
  Receipt Date: 20230215
  Transmission Date: 20230417
  Serious: Yes (Other)
  Sender: FDA-Public Use
  Company Number: PT-Therakind Limited-2137963

PATIENT
  Sex: Male

DRUGS (7)
  1. METHOTREXATE [Suspect]
     Active Substance: METHOTREXATE
     Indication: High-grade B-cell lymphoma
     Route: 065
  2. SULFAMETHOXAZOLE?TRIMETHOPRIM [Concomitant]
  3. VINCRISTINE [Concomitant]
     Active Substance: VINCRISTINE
  4. RITUXIMAB [Concomitant]
     Active Substance: RITUXIMAB
  5. DOXORUBICIN [Concomitant]
     Active Substance: DOXORUBICIN
  6. ACYCLOVIR [Concomitant]
     Active Substance: ACYCLOVIR
  7. CYCLOPHOSPHAMIDE [Concomitant]
     Active Substance: CYCLOPHOSPHAMIDE

REACTIONS (3)
  - Toxicity to various agents [Unknown]
  - Acute kidney injury [Unknown]
  - Product use in unapproved indication [Unknown]
